FAERS Safety Report 14869603 (Version 1)
Quarter: 2018Q2

REPORT INFORMATION
  Report Type: Spontaneous
  Country: US (occurrence: US)
  Receive Date: 20180423
  Receipt Date: 20180423
  Transmission Date: 20180711
  Serious: No
  Sender: FDA-Public Use
  Company Number: None

PATIENT
  Age: 66 Year
  Sex: Female
  Weight: 95.25 kg

DRUGS (1)
  1. METHYLPREDNISOLONESUCCINATE SODIUM [Suspect]
     Active Substance: BUPIVACAINE HYDROCHLORIDE\METHYLPREDNISOLONE ACETATE\POVIDONE-IODINE
     Indication: PAIN IN EXTREMITY
     Dosage: ?          QUANTITY:21 DF DOSAGE FORM;?
     Route: 048

REACTIONS (1)
  - Ageusia [None]

NARRATIVE: CASE EVENT DATE: 20170311
